FAERS Safety Report 6111708-4 (Version None)
Quarter: 2009Q1

REPORT INFORMATION
  Report Type: 
  Country: None (occurrence: None)
  Receive Date: 20090309
  Receipt Date: 20090224
  Transmission Date: 20090719
  Serious: Yes (Hospitalization)
  Sender: FDA-Public Use
  Company Number: VISP-NO-0902S-0083

PATIENT
  Age: 66 Year
  Sex: Female

DRUGS (1)
  1. VISIPAQUE [Suspect]
     Indication: DRUG USE FOR UNKNOWN INDICATION
     Dosage: SINGLE DOSE
     Dates: start: 20090219, end: 20090219

REACTIONS (1)
  - LOSS OF CONSCIOUSNESS [None]
